FAERS Safety Report 6295859-X (Version None)
Quarter: 2009Q3

REPORT INFORMATION
  Report Type: 
  Country: None (occurrence: None)
  Receive Date: 20090804
  Receipt Date: 20090721
  Transmission Date: 20100115
  Serious: Yes (Death)
  Sender: FDA-Public Use
  Company Number: PK-ROCHE-644883

PATIENT
  Sex: Male

DRUGS (5)
  1. PEG-INTERFERON ALFA 2A (RO 25-8310) [Suspect]
     Route: 058
     Dates: start: 20090706, end: 20090715
  2. RIBAVIRIN [Suspect]
     Route: 048
     Dates: start: 20090706, end: 20090715
  3. ELTROMBOPAG [Suspect]
     Indication: THROMBOCYTOPENIA
     Route: 048
     Dates: start: 20090608, end: 20090622
  4. ELTROMBOPAG [Suspect]
     Route: 048
     Dates: start: 20090622, end: 20090705
  5. BLINDED ELTROMBOPAG [Suspect]
     Indication: THROMBOCYTOPENIA
     Dosage: DOSE BLINDED
     Route: 048
     Dates: start: 20090706, end: 20090715

REACTIONS (1)
  - DEATH [None]
